FAERS Safety Report 13088302 (Version 1)
Quarter: 2017Q1

REPORT INFORMATION
  Report Type: Spontaneous
  Country: US (occurrence: US)
  Receive Date: 20170104
  Receipt Date: 20170104
  Transmission Date: 20170428
  Serious: No
  Sender: FDA-Public Use
  Company Number: None

PATIENT
  Age: 50 Year
  Sex: Female

DRUGS (1)
  1. SANDOSTATIN [Suspect]
     Active Substance: OCTREOTIDE ACETATE
     Indication: ACROMEGALY
     Route: 058
     Dates: start: 20160712

REACTIONS (4)
  - Urticaria [None]
  - Flushing [None]
  - Headache [None]
  - Petechiae [None]

NARRATIVE: CASE EVENT DATE: 20161101
